FAERS Safety Report 13367007 (Version 1)
Quarter: 2017Q1

REPORT INFORMATION
  Report Type: Spontaneous
  Country: US (occurrence: US)
  Receive Date: 20170323
  Receipt Date: 20170323
  Transmission Date: 20170429
  Serious: Yes (Hospitalization)
  Sender: FDA-Public Use
  Company Number: None

PATIENT
  Age: 23 Year
  Sex: Female
  Weight: 68.05 kg

DRUGS (1)
  1. MIRENA [Suspect]
     Active Substance: LEVONORGESTREL

REACTIONS (5)
  - Device dislocation [None]
  - Discomfort [None]
  - Uterine haemorrhage [None]
  - Coital bleeding [None]
  - Dyspareunia [None]

NARRATIVE: CASE EVENT DATE: 20170307
